FAERS Safety Report 14103265 (Version 2)
Quarter: 2017Q4

REPORT INFORMATION
  Report Type: Spontaneous
  Country: JP (occurrence: JP)
  Receive Date: 20171018
  Receipt Date: 20171025
  Transmission Date: 20180321
  Serious: Yes (Death, Life-Threatening, Hospitalization, Other)
  Sender: FDA-Public Use
  Company Number: JP-PFIZER INC-2017361385

PATIENT
  Age: 63 Year
  Sex: Male

DRUGS (3)
  1. PREDONINE [Suspect]
     Active Substance: PREDNISOLONE
     Indication: MESANGIOPROLIFERATIVE GLOMERULONEPHRITIS
     Dosage: 50 MG, 1X/DAY
     Route: 048
     Dates: start: 20170503, end: 20170731
  2. SUTENT [Suspect]
     Active Substance: SUNITINIB MALATE
     Indication: RENAL CELL CARCINOMA
     Dosage: 37.5 MG, CYCLIC (ONCE DAILY, TWO-WEEK-ON AND 1-WEEK-OFF)
     Route: 048
     Dates: start: 20170704, end: 20170717
  3. HYDROCORTONE /00028601/ [Suspect]
     Active Substance: HYDROCORTISONE
     Indication: MESANGIOPROLIFERATIVE GLOMERULONEPHRITIS
     Dosage: 100 MG, 1X/DAY
     Route: 041
     Dates: start: 20170801

REACTIONS (10)
  - Neutrophil count decreased [Recovered/Resolved with Sequelae]
  - Hypophagia [Unknown]
  - Stomatitis [Unknown]
  - Acute respiratory distress syndrome [Fatal]
  - Haemorrhagic cerebral infarction [Fatal]
  - Altered state of consciousness [Unknown]
  - Movement disorder [Unknown]
  - Hypercapnia [Unknown]
  - Pneumonia bacterial [Fatal]
  - Pupillary reflex impaired [Unknown]

NARRATIVE: CASE EVENT DATE: 201707
